FAERS Safety Report 15582404 (Version 3)
Quarter: 2018Q4

REPORT INFORMATION
  Report Type: Spontaneous
  Country: FR (occurrence: FR)
  Receive Date: 20181102
  Receipt Date: 20181221
  Transmission Date: 20190205
  Serious: Yes (Disabling)
  Sender: FDA-Public Use
  Company Number: FR-TEVA-2018-FR-971009

PATIENT
  Age: 67 Year
  Sex: Male

DRUGS (9)
  1. DACARBAZINE. [Suspect]
     Active Substance: DACARBAZINE
     Indication: HODGKIN^S DISEASE
     Dosage: EVERY 15 DAYS; TOTAL DOSE ADMINISTERED: 10350 MG
     Route: 042
     Dates: start: 20110930, end: 20120420
  2. AUGMENTIN [Concomitant]
     Active Substance: AMOXICILLIN\CLAVULANATE POTASSIUM
     Indication: RHINITIS
     Route: 065
     Dates: start: 201203, end: 201203
  3. ADRIAMYCIN [Suspect]
     Active Substance: DOXORUBICIN HYDROCHLORIDE
     Indication: HODGKIN^S DISEASE
     Dosage: EVERY 15 DAYS; TOTAL DOSE ADMINISTERED: 690 MG
     Route: 042
     Dates: start: 20110930, end: 20120420
  4. EMEND [Concomitant]
     Active Substance: APREPITANT
     Indication: PROPHYLAXIS
     Route: 065
     Dates: start: 20110930, end: 20120420
  5. VINBLASTINE SULFATE. [Suspect]
     Active Substance: VINBLASTINE SULFATE
     Indication: HODGKIN^S DISEASE
     Dosage: EVERY 15 DAYS; DOSE: 150 MG
     Route: 042
     Dates: start: 20110930, end: 20120420
  6. METHYLPREDNISOLONE. [Concomitant]
     Active Substance: METHYLPREDNISOLONE
     Indication: PROPHYLAXIS
     Dosage: EVERY 15 DAYS: 8 CYCLES, TOTAL ADMINISTERED DOSE: 900MG
     Route: 042
     Dates: start: 20110930, end: 20120420
  7. ZOPHREN [Concomitant]
     Active Substance: ONDANSETRON
     Indication: PROPHYLAXIS
     Route: 042
     Dates: start: 20110930, end: 20120420
  8. POLARAMINE [Concomitant]
     Active Substance: DEXCHLORPHENIRAMINE MALEATE
     Indication: PROPHYLAXIS
     Dosage: EVERY 15 DAYS: DOSE: 75MG
     Route: 042
     Dates: start: 20110930, end: 20120420
  9. BLEOMYCINE BELLON [Suspect]
     Active Substance: BLEOMYCIN SULFATE
     Indication: HODGKIN^S DISEASE
     Dosage: EVERY 15 DAYS; TOTAL DOSE ADMINISTERED: 239.4 MG
     Route: 042
     Dates: start: 20110930, end: 20120420

REACTIONS (1)
  - Deafness bilateral [Not Recovered/Not Resolved]

NARRATIVE: CASE EVENT DATE: 20120420
